FAERS Safety Report 22348890 (Version 1)
Quarter: 2023Q2

REPORT INFORMATION
  Report Type: Report from Study
  Country: US (occurrence: US)
  Receive Date: 20230522
  Receipt Date: 20230522
  Transmission Date: 20230722
  Serious: Yes (Other)
  Sender: FDA-Public Use
  Company Number: US-002147023-NVSC2023US112091

PATIENT
  Sex: Female
  Weight: 90.72 kg

DRUGS (5)
  1. COSENTYX [Suspect]
     Active Substance: SECUKINUMAB
     Indication: Psoriasis
     Dosage: UNK, TAKING FOR 2 YEARS APPROXIMATELY
     Route: 065
  2. ESTRADIOL [Suspect]
     Active Substance: ESTRADIOL
     Indication: Psoriasis
     Dosage: UNK
     Route: 065
  3. CLOBETASOL [Suspect]
     Active Substance: CLOBETASOL
     Indication: Psoriasis
     Dosage: UNK
     Route: 065
  4. BETAMETHASONE [Suspect]
     Active Substance: BETAMETHASONE
     Indication: Psoriasis
     Dosage: UNK
     Route: 065
  5. VITAMINS [Suspect]
     Active Substance: VITAMINS
     Indication: Psoriasis
     Dosage: UNK
     Route: 065

REACTIONS (8)
  - Psoriatic arthropathy [Recovering/Resolving]
  - Dermatillomania [Unknown]
  - Cyst rupture [Unknown]
  - Neoplasm skin [Unknown]
  - Papule [Unknown]
  - Xerosis [Unknown]
  - Product use in unapproved indication [Unknown]
  - Drug ineffective [Unknown]
